FAERS Safety Report 9735310 (Version 1)
Quarter: 2013Q4

REPORT INFORMATION
  Report Type: Spontaneous
  Country: ES (occurrence: None)
  Receive Date: 20131204
  Receipt Date: 20131204
  Transmission Date: 20140711
  Serious: Yes (Death)
  Sender: FDA-Public Use
  Company Number: SYM-2013-13447

PATIENT
  Sex: Female

DRUGS (3)
  1. FLUOROURACIL (FLUORORACIL) (FLUOROURACIL) [Suspect]
     Indication: BREAST CANCER
  2. CYCLOPHOSPHAMIDE (CYCLOPHOSPHAMIDE) (CYCLOPHOSPHAMIDE) [Suspect]
     Indication: BREAST CANCER
  3. DOXORUBICIN (DOXORUBICIN) (DOXORUBICIN) [Suspect]
     Indication: BREAST CANCER

REACTIONS (1)
  - Sepsis [None]
